FAERS Safety Report 11703666 (Version 5)
Quarter: 2016Q2

REPORT INFORMATION
  Report Type: Spontaneous
  Country: BR (occurrence: BR)
  Receive Date: 20151106
  Receipt Date: 20160603
  Transmission Date: 20160815
  Serious: Yes (Hospitalization)
  Sender: FDA-Public Use
  Company Number: BR-AMGEN-BRASP2015092674

PATIENT
  Age: 39 Year
  Sex: Male
  Weight: 60 kg

DRUGS (19)
  1. ENBREL [Suspect]
     Active Substance: ETANERCEPT
     Dosage: 50 MG, WEEKLY
     Route: 058
  2. DIAZEPAM. [Concomitant]
     Active Substance: DIAZEPAM
     Indication: DEPRESSION
     Dosage: 1 TABLET, 2X/DAY (STRENGTH 10MG)
  3. ENBREL [Suspect]
     Active Substance: ETANERCEPT
     Dosage: 50 MG, QWK
     Route: 058
  4. MIOSAN [Concomitant]
     Active Substance: CYCLOBENZAPRINE
     Indication: DEPRESSION
     Dosage: UNK
  5. IMIPRAMINE [Concomitant]
     Active Substance: IMIPRAMINE
     Indication: NERVOUS SYSTEM DISORDER
     Dosage: UNK
  6. IMIPRAMINE [Concomitant]
     Active Substance: IMIPRAMINE
     Dosage: UNK
  7. ENBREL [Suspect]
     Active Substance: ETANERCEPT
     Indication: RHEUMATOID ARTHRITIS
     Dosage: 50 MG, ONCE WEEKLY
     Route: 058
     Dates: start: 20140813
  8. VELIJA [Concomitant]
     Active Substance: DULOXETINE HYDROCHLORIDE
     Indication: DEPRESSION
     Dosage: 30 MG, DAILY (STRENGTH 30 MG, 1 TABLET)
     Dates: start: 201509
  9. ENBREL [Suspect]
     Active Substance: ETANERCEPT
     Dosage: UNK
     Route: 065
  10. ENBREL [Suspect]
     Active Substance: ETANERCEPT
     Dosage: 1 APPLICATION/WEEK
     Route: 065
     Dates: start: 201409
  11. NIFEDIPINE. [Concomitant]
     Active Substance: NIFEDIPINE
     Indication: HYPERTENSION
     Dosage: 1 TABLET/DAY
     Dates: start: 2015
  12. DIAZEPAM. [Concomitant]
     Active Substance: DIAZEPAM
     Dosage: 1 TABLET (STRENGTH 10MG), USED ONLY WHEN HE WAS ANXIOUS
  13. HYDROCHLOROTHIAZIDE. [Concomitant]
     Active Substance: HYDROCHLOROTHIAZIDE
     Indication: HYPERTENSION
     Dosage: 1 TABLET/DAY
  14. CAPTOPRIL. [Concomitant]
     Active Substance: CAPTOPRIL
     Indication: HYPERTENSION
     Dosage: 1 TABLET, TWICE DAILY  (STRENGTH 25 MG)
  15. HYDROCHLOROTHIAZIDE. [Concomitant]
     Active Substance: HYDROCHLOROTHIAZIDE
     Indication: HYPERTENSION
     Dosage: 1 TABLET (25MG)/DAY
  16. HYDROCHLOROTHIAZIDE. [Concomitant]
     Active Substance: HYDROCHLOROTHIAZIDE
     Dosage: 1 TABLET (25MG)/DAY
  17. NIFEDIPINE. [Concomitant]
     Active Substance: NIFEDIPINE
     Indication: HYPERTENSION
  18. DIAZEPAM. [Concomitant]
     Active Substance: DIAZEPAM
     Dosage: 1 TABLET (STRENGTH 10MG), USED ONLY WHEN HE WAS ANXIOUS
  19. CAPTOPRIL. [Concomitant]
     Active Substance: CAPTOPRIL
     Indication: HYPERTENSION
     Dosage: 1 TABLET, TWICE DAILY  (STRENGTH 25 MG)

REACTIONS (19)
  - Influenza [Not Recovered/Not Resolved]
  - Depression [Recovered/Resolved]
  - Emotional disorder [Unknown]
  - Skin haemorrhage [Unknown]
  - Back pain [Not Recovered/Not Resolved]
  - Rash macular [Not Recovered/Not Resolved]
  - Abdominal pain [Not Recovered/Not Resolved]
  - Dysphonia [Not Recovered/Not Resolved]
  - Condition aggravated [Not Recovered/Not Resolved]
  - Paraesthesia [Recovered/Resolved]
  - Psoriasis [Not Recovered/Not Resolved]
  - Bedridden [Not Recovered/Not Resolved]
  - Skin exfoliation [Unknown]
  - Disease recurrence [Recovered/Resolved]
  - Arthralgia [Not Recovered/Not Resolved]
  - Pruritus [Recovered/Resolved]
  - Condition aggravated [Unknown]
  - Confusional state [Unknown]
  - Pain in extremity [Not Recovered/Not Resolved]

NARRATIVE: CASE EVENT DATE: 2015
